FAERS Safety Report 15235093 (Version 3)
Quarter: 2018Q4

REPORT INFORMATION
  Report Type: Spontaneous
  Country: JP (occurrence: JP)
  Receive Date: 20180803
  Receipt Date: 20181102
  Transmission Date: 20190204
  Serious: Yes (Death, Hospitalization, Other)
  Sender: FDA-Public Use
  Company Number: JP-009507513-1808JPN001269

PATIENT
  Age: 78 Year
  Sex: Female

DRUGS (12)
  1. MUCODYNE [Concomitant]
     Active Substance: CARBOCYSTEINE
     Indication: ASTHMA
     Dosage: 3 DOSAGE FORM, QD
     Route: 048
     Dates: start: 20180612, end: 20180710
  2. FEXOFENADINE HYDROCHLORIDE. [Concomitant]
     Active Substance: FEXOFENADINE HYDROCHLORIDE
     Indication: URTICARIA
     Dosage: 120 MILLIGRAM/DAY
     Route: 048
     Dates: start: 20180417, end: 20180710
  3. PRANLUKAST [Concomitant]
     Active Substance: PRANLUKAST
     Dosage: 25.0 MILLIGRAM/DAY
     Route: 048
     Dates: start: 20180414
  4. SORENTMIN (BROTIZOLAM) [Concomitant]
     Dosage: 0.25 MILLIGRAM/DAY
     Route: 048
     Dates: start: 20180414
  5. RELVAR [Concomitant]
     Active Substance: FLUTICASONE FUROATE\VILANTEROL TRIFENATATE
     Indication: ASTHMA
     Dosage: 200 MICROGRAM, QD
     Route: 055
     Dates: start: 20180707, end: 20180710
  6. KLARICID [Concomitant]
     Active Substance: CLARITHROMYCIN
     Indication: BRONCHITIS
     Dosage: 2 DOSAGE FORM, QD
     Route: 048
     Dates: start: 20180612, end: 20180710
  7. THEO-DUR [Concomitant]
     Active Substance: THEOPHYLLINE ANHYDROUS
     Indication: ASTHMA
     Dosage: 100 MG, QD
     Route: 048
     Dates: start: 20180612, end: 20180710
  8. OLMESARTAN MEDOXOMIL. [Concomitant]
     Active Substance: OLMESARTAN MEDOXOMIL
     Indication: HYPERTENSION
     Dosage: 10 MILLIGRAM/DAY
     Route: 048
     Dates: start: 20180417, end: 20180710
  9. AMBROXOL HYDROCHLORIDE [Concomitant]
     Active Substance: AMBROXOL HYDROCHLORIDE
     Dosage: 45 MILLIGRAM/DAY
     Route: 048
     Dates: start: 20180414
  10. AMLODIPINE BESYLATE. [Concomitant]
     Active Substance: AMLODIPINE BESYLATE
     Indication: HYPERTENSION
     Dosage: 5 MILLIGRAM/DAY
     Route: 048
     Dates: start: 20180417, end: 20180710
  11. RABEPRAZOLE SODIUM. [Concomitant]
     Active Substance: RABEPRAZOLE SODIUM
     Dosage: 10 MG, QD
     Route: 048
     Dates: start: 20180417, end: 20180710
  12. ALENDRONATE SODIUM. [Suspect]
     Active Substance: ALENDRONATE SODIUM
     Indication: OSTEOPOROSIS
     Dosage: 35 MG, MILLIGRAM PER WEEK
     Route: 048
     Dates: start: 20180709, end: 20180709

REACTIONS (2)
  - Pyrexia [Fatal]
  - Wheezing [Fatal]

NARRATIVE: CASE EVENT DATE: 20180710
